FAERS Safety Report 12173789 (Version 1)
Quarter: 2016Q1

REPORT INFORMATION
  Report Type: Spontaneous
  Country: US (occurrence: None)
  Receive Date: 20160311
  Receipt Date: 20160311
  Transmission Date: 20160526
  Serious: No
  Sender: FDA-Public Use
  Company Number: None

PATIENT
  Age: 71 Year
  Sex: Male

DRUGS (1)
  1. GLEEVEC [Suspect]
     Active Substance: IMATINIB MESYLATE
     Indication: SMALL INTESTINE CARCINOMA
     Dosage: 1 TABLET
     Route: 048
     Dates: start: 2007, end: 201602

REACTIONS (1)
  - No therapeutic response [None]

NARRATIVE: CASE EVENT DATE: 20160201
